FAERS Safety Report 9160459 (Version 1)
Quarter: 2013Q1

REPORT INFORMATION
  Report Type: Report from Study
  Country: CA (occurrence: CA)
  Receive Date: 20130313
  Receipt Date: 20130313
  Transmission Date: 20140127
  Serious: Yes (Other)
  Sender: FDA-Public Use
  Company Number: CA-JNJFOC-20130300578

PATIENT
  Age: 20 Year
  Sex: Male
  Weight: 71.8 kg

DRUGS (8)
  1. REMICADE [Suspect]
     Indication: COLITIS ULCERATIVE
     Route: 042
     Dates: start: 20120222
  2. WARFARIN [Concomitant]
     Route: 065
  3. CANNABIS SATIVA SUBSP. INDICA TOP [Concomitant]
     Route: 065
  4. MEZAVANT [Concomitant]
     Route: 065
  5. PROBIOTIC [Concomitant]
     Route: 065
  6. SILICA (VEGETAL) [Concomitant]
     Route: 065
  7. CALCIUM [Concomitant]
     Route: 065
  8. MAGNESIUM [Concomitant]
     Route: 065

REACTIONS (4)
  - Anxiety [Recovered/Resolved]
  - Hypoaesthesia [Recovered/Resolved]
  - Dizziness [Recovered/Resolved]
  - Nausea [Recovered/Resolved]
